FAERS Safety Report 8718792 (Version 2)
Quarter: 2013Q4

REPORT INFORMATION
  Report Type: Spontaneous
  Country: US (occurrence: US)
  Receive Date: 20120810
  Receipt Date: 20131101
  Transmission Date: 20140711
  Serious: No
  Sender: FDA-Public Use
  Company Number: US-009507513-2012SP029522

PATIENT
  Sex: Female

DRUGS (3)
  1. CLARITIN-D-24 [Suspect]
     Indication: PRODUCT USED FOR UNKNOWN INDICATION
     Dosage: UNK UNK, ONCE
     Route: 048
     Dates: start: 20120410
  2. CLARITIN-D-24 [Suspect]
     Indication: MEDICAL OBSERVATION
  3. FOSAMAX [Concomitant]
     Indication: PRODUCT USED FOR UNKNOWN INDICATION
     Dosage: UNK UNK, QW

REACTIONS (3)
  - Restlessness [Unknown]
  - Hyperhidrosis [Unknown]
  - Feeling abnormal [Unknown]
